FAERS Safety Report 9422865 (Version 1)
Quarter: 2013Q3

REPORT INFORMATION
  Report Type: Other
  Country: FR (occurrence: FR)
  Receive Date: 20130726
  Receipt Date: 20130726
  Transmission Date: 20140515
  Serious: Yes (Death, Hospitalization)
  Sender: FDA-Public Use
  Company Number: FR-JHP PHARMACEUTICALS, LLC-JHP201300473

PATIENT
  Age: 28 Year
  Sex: Female

DRUGS (3)
  1. DANTRIUM [Suspect]
  2. IOMERON [Suspect]
     Dosage: 350 MG IODINE/ ML
     Route: 042
     Dates: start: 20130321
  3. TEGRETOL [Suspect]

REACTIONS (1)
  - Cardio-respiratory arrest [Fatal]
